FAERS Safety Report 5083536-2 (Version None)
Quarter: 2006Q3

REPORT INFORMATION
  Report Type: 
  Country: None (occurrence: None)
  Receive Date: 20060818
  Receipt Date: 20060808
  Transmission Date: 20061208
  Serious: Yes (Hospitalization)
  Sender: FDA-Public Use
  Company Number: US-JNJFOC-20060602736

PATIENT
  Sex: Female
  Weight: 68.04 kg

DRUGS (4)
  1. RISPERDAL CONSTA [Suspect]
     Indication: SCHIZOAFFECTIVE DISORDER
     Route: 030
  2. PRINIVIL [Concomitant]
     Indication: HYPERTENSION
     Route: 048
  3. DEPAKOTE [Concomitant]
     Route: 048
  4. CELEXA [Concomitant]
     Route: 048

REACTIONS (2)
  - DIABETES MELLITUS [None]
  - INJECTION SITE NECROSIS [None]
